FAERS Safety Report 9916728 (Version 2)
Quarter: 2014Q2

REPORT INFORMATION
  Report Type: Spontaneous
  Country: US (occurrence: US)
  Receive Date: 20140221
  Receipt Date: 20140410
  Transmission Date: 20141212
  Serious: Yes (Hospitalization)
  Sender: FDA-Public Use
  Company Number: US-UCBSA-112538

PATIENT
  Age: 48 Year
  Sex: Male
  Weight: 90.71 kg

DRUGS (4)
  1. VIMPAT [Suspect]
     Indication: CONVULSION
     Dates: end: 2014
  2. VIMPAT [Suspect]
     Indication: CONVULSION
     Dates: start: 201402
  3. ONFI [Concomitant]
     Indication: CONVULSION
     Route: 048
  4. GABAPENTIN [Concomitant]
     Indication: CONVULSION
     Route: 048

REACTIONS (4)
  - Meningitis [Recovered/Resolved]
  - Convulsion [Recovered/Resolved]
  - Amnesia [Not Recovered/Not Resolved]
  - Treatment noncompliance [Recovered/Resolved]
